FAERS Safety Report 9117034 (Version 1)
Quarter: 2013Q1

REPORT INFORMATION
  Report Type: Report from Study
  Country: CA (occurrence: CA)
  Receive Date: 20130225
  Receipt Date: 20130225
  Transmission Date: 20140127
  Serious: Yes (Other)
  Sender: FDA-Public Use
  Company Number: CA-JNJFOC-20121100910

PATIENT
  Sex: Female
  Weight: 62.7 kg

DRUGS (7)
  1. REMICADE [Suspect]
     Indication: CROHN^S DISEASE
     Dosage: 18TH INFUSION.
     Route: 042
     Dates: start: 20121221
  2. REMICADE [Suspect]
     Indication: CROHN^S DISEASE
     Dosage: 16TH INFUSION.
     Route: 042
     Dates: start: 20120831
  3. REMICADE [Suspect]
     Indication: CROHN^S DISEASE
     Dosage: 16TH INFUSION.
     Route: 042
     Dates: start: 20101116
  4. REMICADE [Suspect]
     Indication: CROHN^S DISEASE
     Route: 042
     Dates: start: 20100726
  5. TYLENOL ARTHRITIS [Concomitant]
     Indication: PREMEDICATION
     Route: 065
  6. VITAMIN B12 [Concomitant]
     Indication: PREMEDICATION
     Route: 050
  7. SOLUCORTEF [Concomitant]
     Indication: PREMEDICATION
     Route: 042

REACTIONS (1)
  - Carpal tunnel syndrome [Not Recovered/Not Resolved]
